FAERS Safety Report 8577444-X (Version None)
Quarter: 2012Q3

REPORT INFORMATION
  Report Type: 
  Country: None (occurrence: None)
  Receive Date: 20120807
  Receipt Date: 20120731
  Transmission Date: 20120928
  Serious: Yes (Hospitalization)
  Sender: FDA-Public Use
  Company Number: PHHY2008JP11862

PATIENT
  Sex: Male
  Weight: 63 kg

DRUGS (40)
  1. CERTICAN [Suspect]
     Dosage: 4.5 MG
     Route: 048
     Dates: start: 20081109, end: 20090615
  2. CERTICAN [Suspect]
     Dosage: 3.5 MG
     Route: 048
     Dates: start: 20090619, end: 20090828
  3. CERTICAN [Suspect]
     Dosage: 3 MG
     Route: 048
     Dates: start: 20100923, end: 20101213
  4. TACROLIMUS [Suspect]
     Dosage: 5 MG
     Route: 048
     Dates: start: 20070608, end: 20070810
  5. TACROLIMUS [Suspect]
     Dosage: 4.5 MG
     Route: 048
     Dates: start: 20070811, end: 20070929
  6. PREDNISOLONE [Concomitant]
     Indication: HEART TRANSPLANT
     Dosage: 1.25 MG
     Route: 048
     Dates: start: 20061101, end: 20070502
  7. CERTICAN [Suspect]
     Dosage: 3.5 MG
     Route: 048
     Dates: start: 20090829, end: 20090928
  8. CERTICAN [Suspect]
     Dosage: 2.25 MG
     Route: 048
     Dates: start: 20100209, end: 20100319
  9. TACROLIMUS [Suspect]
     Dosage: 3.5 MG
     Route: 048
     Dates: start: 20061101, end: 20061211
  10. TACROLIMUS [Suspect]
     Dosage: 2.25 MG
     Route: 048
     Dates: start: 20080709, end: 20080814
  11. CERTICAN [Suspect]
     Indication: HEART TRANSPLANT
     Dosage: 1.5 MG
     Route: 048
     Dates: start: 20060907, end: 20061031
  12. CERTICAN [Suspect]
     Dosage: 1.25 MG
     Route: 048
     Dates: start: 20061101, end: 20070302
  13. CERTICAN [Suspect]
     Dosage: 1 MG
     Route: 048
     Dates: start: 20070303, end: 20070711
  14. CERTICAN [Suspect]
     Dosage: 3.25 MG
     Route: 048
     Dates: start: 20090929, end: 20091003
  15. CERTICAN [Suspect]
     Dosage: 2.75 MG
     Route: 048
     Dates: start: 20100428, end: 20100621
  16. CERTICAN [Suspect]
     Dosage: 3.25 MG
     Route: 048
     Dates: start: 20100906, end: 20100922
  17. CERTICAN [Suspect]
     Dosage: 3 MG
     Route: 048
     Dates: start: 20101214, end: 20110126
  18. CERTICAN [Suspect]
     Dosage: 2.5 MG
     Route: 048
     Dates: start: 20110127, end: 20110418
  19. TACROLIMUS [Suspect]
     Dosage: 2.75 MG
     Route: 048
     Dates: start: 20080620, end: 20080627
  20. TACROLIMUS [Suspect]
     Dosage: 2.5 MG
     Route: 048
     Dates: start: 20080628, end: 20080708
  21. PRAVASTATIN SODIUM [Concomitant]
     Dosage: 10 MG
     Route: 048
  22. CERTICAN [Suspect]
     Dosage: 7 MG
     Route: 048
     Dates: start: 20080927, end: 20081105
  23. CERTICAN [Suspect]
     Dosage: 3 MG
     Route: 048
     Dates: start: 20100720, end: 20100905
  24. TACROLIMUS [Suspect]
     Dosage: 4 MG
     Route: 048
     Dates: start: 20061212, end: 20070112
  25. CERTICAN [Suspect]
     Dosage: 6.75 MG
     Route: 048
     Dates: start: 20070712, end: 20080905
  26. CERTICAN [Suspect]
     Dosage: 2.5 MG
     Route: 048
     Dates: start: 20100416, end: 20100427
  27. CERTICAN [Suspect]
     Dosage: 2.5 MG
     Route: 048
     Dates: start: 20100622, end: 20100719
  28. CERTICAN [Suspect]
     Dosage: 2.25 MG
     Route: 048
     Dates: start: 20110419
  29. HERBESSOR R [Concomitant]
     Dosage: 400 MG, UNK
     Dates: start: 20061101
  30. PRAVASTATIN SODIUM [Concomitant]
     Dosage: 20 MG, UNK
     Dates: start: 20061101
  31. TACROLIMUS [Suspect]
     Dosage: 3 MG
     Route: 048
     Dates: start: 20080606, end: 20080619
  32. PREDNISOLONE [Concomitant]
     Indication: HEART TRANSPLANT
     Dosage: 5 MG
     Route: 048
     Dates: start: 20080606
  33. LEVEMIR [Concomitant]
  34. CERTICAN [Suspect]
     Dosage: 2 MG
     Route: 048
     Dates: start: 20100320, end: 20100415
  35. TACROLIMUS [Suspect]
     Dosage: 4.5 MG
     Route: 048
     Dates: start: 20070113, end: 20070607
  36. MYCOPHENOLATE MOFETIL [Concomitant]
     Indication: HEART TRANSPLANT
     Route: 048
  37. CAPTOPRIL [Concomitant]
     Dosage: 37.5 MG, UNK
     Dates: start: 20061101
  38. CERTICAN [Suspect]
     Dosage: 4 MG
     Route: 048
     Dates: start: 20090616, end: 20090618
  39. CERTICAN [Suspect]
     Dosage: 2 MG
     Route: 048
     Dates: start: 20091003, end: 20100208
  40. TACROLIMUS [Suspect]
     Dosage: 4.25 MG
     Route: 048
     Dates: start: 20070930

REACTIONS (10)
  - ABDOMINAL PAIN [None]
  - METASTASES TO LIVER [None]
  - LARGE INTESTINE CARCINOMA [None]
  - METASTASES TO LYMPH NODES [None]
  - LARGE INTESTINE PERFORATION [None]
  - OEDEMA PERIPHERAL [None]
  - TROPONIN I INCREASED [None]
  - INFECTIOUS PERITONITIS [None]
  - LYMPHOEDEMA [None]
  - GLUCOSE TOLERANCE IMPAIRED [None]
